FAERS Safety Report 8115892-2 (Version None)
Quarter: 2012Q1

REPORT INFORMATION
  Report Type: 
  Country: None (occurrence: None)
  Receive Date: 20120206
  Receipt Date: 20120202
  Transmission Date: 20120608
  Serious: Yes (Other)
  Sender: FDA-Public Use
  Company Number: US-PFIZER INC-2012029793

PATIENT
  Sex: Female
  Weight: 92.971 kg

DRUGS (12)
  1. TOPAMAX [Suspect]
     Indication: MIGRAINE
     Dosage: 50 MG, 2X/DAY
     Route: 048
  2. VITAMIN B-12 [Suspect]
     Indication: MIGRAINE
     Dosage: 100 MG, DAILY
     Route: 048
  3. ALBUTEROL SULFATE [Concomitant]
     Indication: ASTHMA
     Dosage: UNK, AS NEEDED
  4. KLONOPIN [Concomitant]
     Indication: ANXIETY
     Dosage: 0.5 MG, 2X/DAY
  5. CHANTIX [Suspect]
     Indication: SMOKING CESSATION THERAPY
     Dosage: 0.5 MG, 1X/DAY
     Dates: start: 20120122, end: 20120101
  6. OXYCODONE HYDROCHLORIDE [Suspect]
     Indication: PAIN MANAGEMENT
     Dosage: 10/325MG 4X/DAY OR AS NEEDED
     Dates: start: 20110101
  7. PANTOPRAZOLE [Concomitant]
     Indication: GASTROOESOPHAGEAL REFLUX DISEASE
     Dosage: 40 MG, DAILY
     Route: 048
  8. CELEXA [Concomitant]
     Indication: ANXIETY
     Dosage: 20 MG, DAILY
  9. CELEXA [Concomitant]
     Indication: DEPRESSION
  10. KLONOPIN [Concomitant]
     Indication: DEPRESSION
  11. CHANTIX [Suspect]
     Dosage: 1 MG, 2X/DAY
     Route: 048
     Dates: start: 20120101, end: 20120201
  12. MAGNESIUM OXIDE [Suspect]
     Indication: MIGRAINE
     Dosage: 400 MG, DAILY
     Route: 048

REACTIONS (5)
  - PYREXIA [None]
  - ASTHENIA [None]
  - RASH GENERALISED [None]
  - TREMOR [None]
  - PRURITUS [None]
